FAERS Safety Report 7138466-9 (Version None)
Quarter: 2010Q4

REPORT INFORMATION
  Report Type: 
  Country: None (occurrence: None)
  Receive Date: 20101206
  Receipt Date: 20101125
  Transmission Date: 20110411
  Serious: Yes (Other)
  Sender: FDA-Public Use
  Company Number: PHHY2010CA17484

PATIENT
  Sex: Female

DRUGS (1)
  1. SANDOSTATIN LAR [Suspect]
     Indication: ACROMEGALY
     Dosage: 30 MG, EVERY 4 WEEKS
     Route: 030
     Dates: start: 20070905, end: 20070905

REACTIONS (3)
  - BLOOD GROWTH HORMONE INCREASED [None]
  - BLOOD PRESSURE INCREASED [None]
  - PARATHYROIDECTOMY [None]
